FAERS Safety Report 9946769 (Version 1)
Quarter: 2014Q1

REPORT INFORMATION
  Report Type: Report from Study
  Country: US (occurrence: US)
  Receive Date: 20140303
  Receipt Date: 20140303
  Transmission Date: 20141002
  Serious: No
  Sender: FDA-Public Use
  Company Number: US-ABBVIE-13P-163-1063621-00

PATIENT
  Age: 20 Year
  Sex: Female

DRUGS (7)
  1. HUMIRA [Suspect]
     Indication: CROHN^S DISEASE
     Dosage: LOADING DOSE
     Dates: start: 20130218, end: 20130218
  2. HUMIRA [Suspect]
     Dosage: LOADING DOSE
  3. HUMIRA [Suspect]
  4. SYMBICORT [Concomitant]
     Indication: ASTHMA
     Dosage: INHALER
  5. PREVACID [Concomitant]
     Indication: GASTROOESOPHAGEAL REFLUX DISEASE
     Dosage: DAILY
  6. SINGULAIR [Concomitant]
     Indication: HYPERSENSITIVITY
     Dosage: DAILY
  7. VENTOLIN [Concomitant]
     Indication: ASTHMA
     Dosage: INHALER

REACTIONS (1)
  - Injection site pain [Recovered/Resolved]
